FAERS Safety Report 25478585 (Version 1)
Quarter: 2025Q2

REPORT INFORMATION
  Report Type: Report from Study
  Country: CA (occurrence: CA)
  Receive Date: 20250625
  Receipt Date: 20250625
  Transmission Date: 20250716
  Serious: Yes (Hospitalization, Other)
  Sender: UCB
  Company Number: CA-UCBSA-2024055783

PATIENT
  Age: 46 Year
  Sex: Female

DRUGS (4)
  1. BIMEKIZUMAB [Suspect]
     Active Substance: BIMEKIZUMAB
     Indication: Psoriasis
     Dosage: 320 MILLIGRAM, EV 4 WEEKS
     Route: 058
     Dates: start: 20230523
  2. BIMEKIZUMAB [Suspect]
     Active Substance: BIMEKIZUMAB
     Dosage: 320 MILLIGRAM, EV 8 WEEKS
     Route: 058
  3. BIMEKIZUMAB [Suspect]
     Active Substance: BIMEKIZUMAB
     Dosage: 320MG EVERY 4 WEEKS
     Route: 058
     Dates: start: 20240814
  4. BIMEKIZUMAB [Suspect]
     Active Substance: BIMEKIZUMAB
     Dosage: 320 MILLIGRAM, EV 8 WEEKS
     Route: 058
     Dates: start: 202501

REACTIONS (6)
  - Hospitalisation [Not Recovered/Not Resolved]
  - Myocardial infarction [Unknown]
  - Injection site bruising [Unknown]
  - Brain fog [Unknown]
  - Psoriasis [Unknown]
  - Product use issue [Unknown]

NARRATIVE: CASE EVENT DATE: 20241001
